FAERS Safety Report 7812646-9 (Version None)
Quarter: 2011Q4

REPORT INFORMATION
  Report Type: 
  Country: None (occurrence: None)
  Receive Date: 20111013
  Receipt Date: 20111004
  Transmission Date: 20120403
  Serious: Yes (Hospitalization)
  Sender: FDA-Public Use
  Company Number: BR-ASTRAZENECA-2011SE60246

PATIENT
  Age: 828 Month
  Sex: Male
  Weight: 79 kg

DRUGS (5)
  1. METFORMIN HYDROCHLORIDE [Concomitant]
     Indication: DIABETES MELLITUS
     Route: 048
     Dates: start: 20041001
  2. ATACAND [Suspect]
     Indication: HYPERTENSION
     Route: 048
     Dates: start: 20041001, end: 20110801
  3. SIVASTACOR [Concomitant]
     Indication: HYPERCHOLESTEROLAEMIA
     Route: 048
     Dates: start: 20041001
  4. DIAMICRON MR [Concomitant]
     Indication: DIABETES MELLITUS
     Route: 048
     Dates: start: 20041001
  5. SOMALGIN [Concomitant]
     Indication: ANTICOAGULANT THERAPY
     Route: 048
     Dates: start: 20041001

REACTIONS (5)
  - BLOOD PRESSURE INCREASED [None]
  - DRUG INEFFECTIVE [None]
  - CORONARY ARTERY OCCLUSION [None]
  - FATIGUE [None]
  - MALAISE [None]
